FAERS Safety Report 24193485 (Version 2)
Quarter: 2024Q3

REPORT INFORMATION
  Report Type: Spontaneous
  Country: NL (occurrence: NL)
  Receive Date: 20240809
  Receipt Date: 20240814
  Transmission Date: 20241016
  Serious: Yes (Other)
  Sender: MYLAN
  Company Number: NL-Daleco-2024-NL-000059

PATIENT
  Age: 52 Year
  Sex: Female

DRUGS (14)
  1. ZOLPIDEM [Interacting]
     Active Substance: ZOLPIDEM TARTRATE
     Indication: Product used for unknown indication
     Dosage: UNK, PRN, WHEN NEEDED
     Route: 065
  2. QUETIAPINE [Suspect]
     Active Substance: QUETIAPINE
     Indication: Product used for unknown indication
     Dosage: 25 MILLIGRAM, QD, IN THE EVENING BEFORE SLEEP
     Route: 065
  3. ACETAMINOPHEN [Interacting]
     Active Substance: ACETAMINOPHEN
     Indication: Pain
     Dosage: 1000 MILLIGRAM, Q8H, 3 TIMES DAILY 2 PILLS
     Route: 065
  4. FLUTICASONE [Interacting]
     Active Substance: FLUTICASONE
     Indication: Hypersensitivity
     Dosage: UNK
     Route: 065
  5. AMISULPRIDE [Suspect]
     Active Substance: AMISULPRIDE
     Indication: Product used for unknown indication
     Dosage: UNK, ONE AND A HALF YEAR, TOGETHER WITH TRACYDAL
     Route: 065
  6. TRANYLCYPROMINE SULFATE [Suspect]
     Active Substance: TRANYLCYPROMINE SULFATE
     Indication: Depression
     Dosage: 40 MILLIGRAM, QD
     Route: 065
  7. TRANYLCYPROMINE SULFATE [Suspect]
     Active Substance: TRANYLCYPROMINE SULFATE
     Dosage: 30 MILLIGRAM, SINCE ONE AND A HALF YEAR; AT THE MOMENT I AM STILL TAKING TRACYDAL 30MG.
     Route: 065
  8. LORAZEPAM [Interacting]
     Active Substance: LORAZEPAM
     Indication: Restlessness
     Dosage: UNK UNK, PRN, WHEN NEEDED
     Route: 065
  9. LORAZEPAM [Interacting]
     Active Substance: LORAZEPAM
     Indication: Mental disorder
  10. LORAZEPAM [Interacting]
     Active Substance: LORAZEPAM
     Indication: Pain
  11. FOSFOR [Concomitant]
     Indication: Asthma
     Dosage: PUFFS
     Route: 065
  12. PANTOPRAZOLE SODIUM [Concomitant]
     Active Substance: PANTOPRAZOLE SODIUM
     Dosage: 40 MILLIGRAM
     Route: 065
  13. Salofalk [Concomitant]
     Indication: Colitis
     Dosage: 3000 MILLIGRAM
     Route: 065
  14. EUTHYROX [Concomitant]
     Active Substance: LEVOTHYROXINE SODIUM
     Dosage: 150 MILLIGRAM
     Route: 065

REACTIONS (24)
  - Epilepsy [Unknown]
  - Restlessness [Unknown]
  - Restless legs syndrome [Recovered/Resolved]
  - Poor quality sleep [Not Recovered/Not Resolved]
  - Malaise [Unknown]
  - Depressed mood [Unknown]
  - Feeling abnormal [Unknown]
  - Panic attack [Unknown]
  - Irritability [Not Recovered/Not Resolved]
  - Mental fatigue [Unknown]
  - Confusional state [Not Recovered/Not Resolved]
  - Potentiating drug interaction [Unknown]
  - Eye pain [Unknown]
  - Back pain [Unknown]
  - Chills [Unknown]
  - Tongue discomfort [Unknown]
  - Insomnia [Not Recovered/Not Resolved]
  - Feeling of body temperature change [Unknown]
  - Dyspnoea [Unknown]
  - Chest pain [Unknown]
  - Throat tightness [Unknown]
  - Amnesia [Not Recovered/Not Resolved]
  - Intentional product use issue [Not Recovered/Not Resolved]
  - Contraindicated product administered [Unknown]

NARRATIVE: CASE EVENT DATE: 20240523
